FAERS Safety Report 7167003-8 (Version None)
Quarter: 2010Q4

REPORT INFORMATION
  Report Type: 
  Country: None (occurrence: None)
  Receive Date: 20101216
  Receipt Date: 20101214
  Transmission Date: 20110411
  Serious: Yes (Other)
  Sender: FDA-Public Use
  Company Number: A0899603A

PATIENT
  Sex: Female

DRUGS (3)
  1. FLOVENT [Suspect]
     Dosage: 4PUFF TWICE PER DAY
     Route: 055
  2. VENTOLIN [Concomitant]
     Route: 065
  3. TAMBOCOR [Concomitant]
     Route: 065

REACTIONS (2)
  - CATARACT [None]
  - VISUAL ACUITY REDUCED [None]
